FAERS Safety Report 6454328-4 (Version None)
Quarter: 2009Q4

REPORT INFORMATION
  Report Type: 
  Country: None (occurrence: None)
  Receive Date: 20091124
  Receipt Date: 20091116
  Transmission Date: 20100525
  Serious: Yes (Hospitalization)
  Sender: FDA-Public Use
  Company Number: US-B.I. PHARMACEUTICALS,INC./RIDGEFIELD-2009-DE-07131GD

PATIENT
  Age: 3 Year
  Sex: Male
  Weight: 19 kg

DRUGS (2)
  1. CLONIDINE [Suspect]
     Indication: SLEEP TERROR
     Dosage: 0.1 MG
     Route: 048
  2. VALPROIC ACID [Concomitant]
     Indication: CONVULSION
     Dosage: 375 MG

REACTIONS (12)
  - AGITATION [None]
  - CONVULSION [None]
  - DEPRESSED LEVEL OF CONSCIOUSNESS [None]
  - DRY MOUTH [None]
  - DYSPNOEA [None]
  - HYPERSOMNIA [None]
  - HYPERTENSION [None]
  - INAPPROPRIATE SCHEDULE OF DRUG ADMINISTRATION [None]
  - MIOSIS [None]
  - OVERDOSE [None]
  - SINUS BRADYCARDIA [None]
  - WRONG TECHNIQUE IN DRUG USAGE PROCESS [None]
